FAERS Safety Report 10154078 (Version 3)
Quarter: 2014Q2

REPORT INFORMATION
  Report Type: Spontaneous
  Country: FR (occurrence: FR)
  Receive Date: 20140506
  Receipt Date: 20140611
  Transmission Date: 20141212
  Serious: Yes (Hospitalization)
  Sender: FDA-Public Use
  Company Number: FR-ROCHE-1392361

PATIENT
  Age: 66 Year
  Sex: Female

DRUGS (20)
  1. MABTHERA [Suspect]
     Indication: B-CELL LYMPHOMA
     Route: 042
     Dates: start: 2007
  2. MABTHERA [Suspect]
     Dosage: 3 COURSES
     Route: 042
     Dates: start: 2009
  3. MABTHERA [Suspect]
     Dosage: MAINTENANCE
     Route: 042
     Dates: start: 2010, end: 2012
  4. MABTHERA [Suspect]
     Dosage: 6 COURSES
     Route: 042
     Dates: start: 2012, end: 2013
  5. MABTHERA [Suspect]
     Route: 042
     Dates: start: 2013, end: 2014
  6. ENDOXAN [Concomitant]
     Route: 042
     Dates: start: 2007
  7. ENDOXAN [Concomitant]
     Dosage: 3 COURSES
     Route: 065
     Dates: start: 2009
  8. ENDOXAN [Concomitant]
     Route: 065
     Dates: start: 2013, end: 2014
  9. ADRIAMYCIN [Concomitant]
     Dosage: 6 COURSES
     Route: 042
     Dates: start: 2007
  10. ADRIAMYCIN [Concomitant]
     Route: 065
     Dates: start: 2013, end: 2014
  11. VINCRISTINE [Concomitant]
     Route: 065
     Dates: start: 2007
  12. VINCRISTINE [Concomitant]
     Route: 065
     Dates: start: 2013, end: 2014
  13. PREDNISOLONE [Concomitant]
     Route: 065
     Dates: start: 2007
  14. PREDNISOLONE [Concomitant]
     Route: 065
     Dates: start: 2013, end: 2014
  15. FLUDARABINE [Concomitant]
     Dosage: 3 COURSES
     Route: 065
     Dates: start: 2009
  16. ETOPOSIDE [Concomitant]
     Dosage: 6 COURSES
     Route: 065
     Dates: start: 2012, end: 2013
  17. METHYLPREDNISOLONE [Concomitant]
     Dosage: 6 COURSES
     Route: 065
     Dates: start: 2012, end: 2013
  18. CYTARABINE [Concomitant]
     Dosage: 6 COURSES
     Route: 065
     Dates: start: 2012, end: 2013
  19. CISPLATIN [Concomitant]
     Dosage: 6 COURSES
     Route: 065
     Dates: start: 2012, end: 2013
  20. BENDAMUSTINE [Concomitant]
     Dosage: 6 COURSES
     Route: 065

REACTIONS (1)
  - Progressive multifocal leukoencephalopathy [Unknown]
